FAERS Safety Report 9034725 (Version 1)
Quarter: 2013Q1

REPORT INFORMATION
  Report Type: Spontaneous
  Country: US (occurrence: None)
  Receive Date: 20130116
  Receipt Date: 20130116
  Transmission Date: 20140127
  Serious: Yes (Hospitalization)
  Sender: FDA-Public Use
  Company Number: None

PATIENT
  Age: 61 Year
  Sex: Male
  Weight: 84.9 kg

DRUGS (4)
  1. BELATACEPT [Suspect]
     Indication: RENAL TRANSPLANT
     Dosage: 425MG  ONCE IV
     Route: 042
     Dates: start: 20121231
  2. CELLCEPT [Suspect]
     Indication: RENAL TRANSPLANT
     Dosage: 500MG  MORN. 250MG EVEN. PO
     Route: 048
     Dates: start: 20120525
  3. ALEMTUZUMAB [Concomitant]
  4. METHYLPREDNISOLONE [Concomitant]

REACTIONS (5)
  - Syncope [None]
  - Asthenia [None]
  - Pulse absent [None]
  - Cyanosis [None]
  - Urinary incontinence [None]
